FAERS Safety Report 10971113 (Version 1)
Quarter: 2015Q1

REPORT INFORMATION
  Report Type: Spontaneous
  Country: US (occurrence: US)
  Receive Date: 20150331
  Receipt Date: 20150331
  Transmission Date: 20150721
  Serious: No
  Sender: FDA-Public Use
  Company Number: US-BAUSCH-SYM-2013-13097

PATIENT
  Age: 60 Year
  Sex: Female
  Weight: 53.57 kg

DRUGS (5)
  1. XENAZINE [Suspect]
     Active Substance: TETRABENAZINE
     Indication: HUNTINGTON^S DISEASE
     Dosage: 1 TABLET, ONCE DAILY
     Route: 048
     Dates: start: 201310, end: 201401
  2. XENAZINE [Suspect]
     Active Substance: TETRABENAZINE
     Dosage: 1/2 TABLET AM AND 1/2 TABLET PM
     Route: 048
     Dates: start: 201401
  3. XENAZINE [Suspect]
     Active Substance: TETRABENAZINE
     Dosage: 1 TABLETS, 2X A DAY
     Route: 048
     Dates: start: 201401, end: 201401
  4. XENAZINE [Suspect]
     Active Substance: TETRABENAZINE
     Dosage: 1 TABLET, 3X A DAY
     Route: 048
     Dates: start: 201401, end: 201401
  5. XENAZINE [Suspect]
     Active Substance: TETRABENAZINE
     Dosage: 1 TABLETS, 4X A DAY
     Route: 048
     Dates: start: 201401, end: 201401

REACTIONS (10)
  - Anxiety [Not Recovered/Not Resolved]
  - Headache [Unknown]
  - Feeling jittery [Not Recovered/Not Resolved]
  - Dysphonia [Not Recovered/Not Resolved]
  - Nervousness [Not Recovered/Not Resolved]
  - Vomiting [Unknown]
  - Nausea [Unknown]
  - Dysphagia [Unknown]
  - Excessive eye blinking [Unknown]
  - Hyperhidrosis [Not Recovered/Not Resolved]

NARRATIVE: CASE EVENT DATE: 201401
